FAERS Safety Report 19704294 (Version 3)
Quarter: 2022Q1

REPORT INFORMATION
  Report Type: Report from Study
  Country: US (occurrence: US)
  Receive Date: 20210816
  Receipt Date: 20220119
  Transmission Date: 20220423
  Serious: Yes (Other)
  Sender: FDA-Public Use
  Company Number: US-UCBSA-2021023816

PATIENT
  Age: 60 Year
  Sex: Female

DRUGS (5)
  1. CERTOLIZUMAB PEGOL [Suspect]
     Active Substance: CERTOLIZUMAB PEGOL
     Indication: Rheumatoid arthritis
     Dosage: 400 MILLIGRAM
     Dates: start: 20210430, end: 2021
  2. CERTOLIZUMAB PEGOL [Suspect]
     Active Substance: CERTOLIZUMAB PEGOL
     Dosage: 200 MILLIGRAM, EV 2 WEEKS(QOW)
     Dates: start: 2021
  3. COVID-19 VACCINE NOS [Suspect]
     Active Substance: COVID-19 VACCINE NOS
     Indication: COVID-19 immunisation
     Dosage: 3RD SHOT IN SEP-2021
  4. LEFLUNOMIDE [Suspect]
     Active Substance: LEFLUNOMIDE
     Indication: Product used for unknown indication
     Dosage: UNK
     Dates: end: 20210802
  5. KEFLEX [Concomitant]
     Active Substance: CEPHALEXIN
     Indication: Decubitus ulcer

REACTIONS (10)
  - Rheumatoid arthritis [Not Recovered/Not Resolved]
  - Decubitus ulcer [Not Recovered/Not Resolved]
  - Colitis microscopic [Recovering/Resolving]
  - Pain in extremity [Recovering/Resolving]
  - Irritability [Recovering/Resolving]
  - Mood swings [Recovering/Resolving]
  - Fatigue [Recovering/Resolving]
  - Vaccination complication [Recovering/Resolving]
  - COVID-19 immunisation [Unknown]
  - Product prescribing error [Unknown]

NARRATIVE: CASE EVENT DATE: 20210430
